FAERS Safety Report 8478591-3 (Version None)
Quarter: 2012Q2

REPORT INFORMATION
  Report Type: 
  Country: None (occurrence: None)
  Receive Date: 20120629
  Receipt Date: 20120625
  Transmission Date: 20120825
  Serious: Yes (Hospitalization, Other)
  Sender: FDA-Public Use
  Company Number: PHHY2012US054250

PATIENT
  Age: 56 Year
  Sex: Female

DRUGS (9)
  1. VANCOMYCIN [Concomitant]
     Dosage: 125 MG, Q6H
     Route: 048
  2. METRONIDAZOLE [Concomitant]
     Dosage: 8 MG/KG, Q8H
     Route: 042
  3. PREDNISONE TAB [Suspect]
     Indication: GRAFT VERSUS HOST DISEASE
     Dosage: 10 MG/ DAILY
  4. LEVOFLOXACIN [Suspect]
     Indication: PROPHYLAXIS
     Dosage: 250 MG, QD
  5. ACYCLOVIR [Concomitant]
     Dosage: 400 MG, BID
  6. COTRIM [Suspect]
     Indication: PROPHYLAXIS
     Route: 048
  7. COTRIM [Suspect]
     Indication: PNEUMOCYSTIS JIROVECI INFECTION
     Route: 042
  8. LINEZOLID [Concomitant]
     Dosage: 600 MG, BID
  9. FLUCONAZOLE [Concomitant]
     Dosage: 100 MG, QD

REACTIONS (14)
  - RESPIRATORY FAILURE [None]
  - MENTAL STATUS CHANGES [None]
  - URINARY TRACT INFECTION ENTEROCOCCAL [None]
  - ABDOMINAL PAIN [None]
  - HYPOTENSION [None]
  - HYPOXIA [None]
  - SEPTIC SHOCK [None]
  - HYPERCAPNIA [None]
  - TACHYCARDIA [None]
  - DIARRHOEA [None]
  - ABDOMINAL DISTENSION [None]
  - CLOSTRIDIAL INFECTION [None]
  - CONFUSIONAL STATE [None]
  - RESPIRATORY MUSCLE WEAKNESS [None]
